FAERS Safety Report 10333046 (Version 1)
Quarter: 2014Q3

REPORT INFORMATION
  Report Type: Spontaneous
  Country: DE (occurrence: DE)
  Receive Date: 20140722
  Receipt Date: 20140722
  Transmission Date: 20150326
  Serious: Yes (Other)
  Sender: FDA-Public Use
  Company Number: DE-WATSON-2014-15764

PATIENT
  Age: 61 Year
  Sex: Male
  Weight: 81 kg

DRUGS (3)
  1. METOPROLOL SUCCINATE (UNKNOWN) [Suspect]
     Active Substance: METOPROLOL SUCCINATE
     Dosage: 45 MG, UNK
     Route: 065
  2. METOPROLOL SUCCINATE (UNKNOWN) [Suspect]
     Active Substance: METOPROLOL SUCCINATE
     Indication: EXTRASYSTOLES
     Dosage: 2X 23.5 MG, UNK
     Route: 065
     Dates: start: 20140628
  3. METOPROLOL SUCCINATE (UNKNOWN) [Suspect]
     Active Substance: METOPROLOL SUCCINATE
     Dosage: 23.5 MG, UNK
     Route: 065

REACTIONS (1)
  - Depressed mood [Unknown]

NARRATIVE: CASE EVENT DATE: 20140701
